FAERS Safety Report 11036823 (Version 1)
Quarter: 2015Q2

REPORT INFORMATION
  Report Type: Spontaneous
  Country: US (occurrence: None)
  Receive Date: 20150415
  Receipt Date: 20150415
  Transmission Date: 20150821
  Serious: Yes (Disabling)
  Sender: FDA-Public Use
  Company Number: None

PATIENT
  Age: 52 Year
  Sex: Male
  Weight: 99.79 kg

DRUGS (4)
  1. WELLBUTRIN [Concomitant]
     Active Substance: BUPROPION HYDROCHLORIDE
  2. BABY ASPRIN [Concomitant]
  3. FLAXSEED POWDER [Concomitant]
  4. SIMVASTATIN. [Suspect]
     Active Substance: SIMVASTATIN
     Indication: BLOOD CHOLESTEROL INCREASED
     Dosage: ONE TABLET
     Route: 048
     Dates: start: 20141101

REACTIONS (6)
  - Feeling abnormal [None]
  - Product blister packaging issue [None]
  - Scar [None]
  - Impaired work ability [None]
  - Product quality issue [None]
  - Laceration [None]

NARRATIVE: CASE EVENT DATE: 20150228
